FAERS Safety Report 25761634 (Version 1)
Quarter: 2025Q3

REPORT INFORMATION
  Report Type: Spontaneous
  Country: US (occurrence: US)
  Receive Date: 20250904
  Receipt Date: 20250904
  Transmission Date: 20251020
  Serious: No
  Sender: FRESENIUS KABI
  Company Number: US-FreseniusKabi-FK202511866

PATIENT
  Sex: Female

DRUGS (3)
  1. TYENNE [Suspect]
     Active Substance: TOCILIZUMAB-AAZG
     Indication: Polymyalgia rheumatica
  2. TYENNE [Suspect]
     Active Substance: TOCILIZUMAB-AAZG
     Indication: Giant cell arteritis
  3. ACTEMRA [Concomitant]
     Active Substance: TOCILIZUMAB
     Indication: Product used for unknown indication

REACTIONS (2)
  - Polymyalgia rheumatica [Unknown]
  - Off label use [Unknown]
